FAERS Safety Report 21676223 (Version 2)
Quarter: 2022Q4

REPORT INFORMATION
  Report Type: Report from Study
  Country: US (occurrence: US)
  Receive Date: 20221202
  Receipt Date: 20221219
  Transmission Date: 20230112
  Serious: No
  Sender: FDA-Public Use
  Company Number: US-MYLANLABS-2022M1134553

PATIENT
  Sex: Male

DRUGS (1)
  1. CELECOXIB [Suspect]
     Active Substance: CELECOXIB
     Indication: Papillary thyroid cancer
     Dosage: UNK
     Route: 065

REACTIONS (1)
  - Off label use [Unknown]
